FAERS Safety Report 24874900 (Version 3)
Quarter: 2025Q1

REPORT INFORMATION
  Report Type: Report from Study
  Country: US (occurrence: US)
  Receive Date: 20250122
  Receipt Date: 20250320
  Transmission Date: 20250408
  Serious: Yes (Other)
  Sender: ABBVIE
  Company Number: US-ABBVIE-5968067

PATIENT
  Age: 69 Year
  Sex: Male
  Weight: 97.068 kg

DRUGS (4)
  1. SKYRIZI [Suspect]
     Active Substance: RISANKIZUMAB-RZAA
     Indication: Crohn^s disease
     Route: 058
  2. SKYRIZI [Suspect]
     Active Substance: RISANKIZUMAB-RZAA
     Indication: Psoriatic arthropathy
     Dosage: FORM STRENGTH 150 MG
     Route: 058
     Dates: start: 20220513, end: 20240920
  3. SKYRIZI [Suspect]
     Active Substance: RISANKIZUMAB-RZAA
     Dosage: FORM STRENGTH 150 MG
     Route: 058
     Dates: start: 20250123
  4. ALENDRONATE [Concomitant]
     Active Substance: ALENDRONATE SODIUM
     Indication: Bone disorder

REACTIONS (7)
  - Gait inability [Recovering/Resolving]
  - Arthropathy [Recovered/Resolved]
  - Arthralgia [Recovering/Resolving]
  - Pain [Recovering/Resolving]
  - Femur fracture [Recovered/Resolved]
  - Tendonitis [Recovering/Resolving]
  - Asthenia [Recovering/Resolving]

NARRATIVE: CASE EVENT DATE: 20221201
